FAERS Safety Report 12632376 (Version 2)
Quarter: 2016Q3

REPORT INFORMATION
  Report Type: Spontaneous
  Country: US (occurrence: US)
  Receive Date: 20160808
  Receipt Date: 20160808
  Transmission Date: 20161109
  Serious: No
  Sender: FDA-Public Use
  Company Number: US-BEH-2016062670

PATIENT
  Sex: Female
  Weight: 78 kg

DRUGS (27)
  1. TIAZAC [Concomitant]
     Active Substance: DILTIAZEM HYDROCHLORIDE
  2. TRAZODONE HYDROCHLORIDE. [Concomitant]
     Active Substance: TRAZODONE HYDROCHLORIDE
  3. SKELAXIN [Concomitant]
     Active Substance: METAXALONE
  4. ZYRTEC [Concomitant]
     Active Substance: CETIRIZINE HYDROCHLORIDE
  5. HIZENTRA [Suspect]
     Active Substance: HUMAN IMMUNOGLOBULIN G
     Indication: HUMORAL IMMUNE DEFECT
     Route: 058
  6. IBUPROFEN. [Concomitant]
     Active Substance: IBUPROFEN
  7. LIPITOR [Concomitant]
     Active Substance: ATORVASTATIN CALCIUM
  8. IMITREX [Concomitant]
     Active Substance: SUMATRIPTAN SUCCINATE
  9. LIDODERM [Concomitant]
     Active Substance: LIDOCAINE
  10. TAGAMET [Concomitant]
     Active Substance: CIMETIDINE
  11. XOPENEX [Concomitant]
     Active Substance: LEVALBUTEROL HYDROCHLORIDE
  12. AMITRIPTYLINE HCL [Concomitant]
     Active Substance: AMITRIPTYLINE
  13. HIZENTRA [Suspect]
     Active Substance: HUMAN IMMUNOGLOBULIN G
     Route: 058
  14. VERAMYST [Concomitant]
     Active Substance: FLUTICASONE FUROATE
  15. PROVENTIL HFA [Concomitant]
     Active Substance: ALBUTEROL SULFATE
  16. HIZENTRA [Suspect]
     Active Substance: HUMAN IMMUNOGLOBULIN G
     Indication: TRANSIENT HYPOGAMMAGLOBULINAEMIA OF INFANCY
     Route: 058
  17. ETODOLAC. [Concomitant]
     Active Substance: ETODOLAC
  18. LYRICA [Concomitant]
     Active Substance: PREGABALIN
  19. ADVAIR DISKUS [Concomitant]
     Active Substance: FLUTICASONE PROPIONATE\SALMETEROL XINAFOATE
  20. SINGULAIR [Concomitant]
     Active Substance: MONTELUKAST SODIUM
  21. TYLENOL [Concomitant]
     Active Substance: ACETAMINOPHEN
  22. PRILOSEC [Concomitant]
     Active Substance: OMEPRAZOLE MAGNESIUM
  23. ROBITUSSIN-CF [Concomitant]
  24. BENADRYL [Concomitant]
     Active Substance: DIPHENHYDRAMINE HYDROCHLORIDE
  25. SUDAFED [Concomitant]
     Active Substance: PSEUDOEPHEDRINE HYDROCHLORIDE
  26. LISINOPRIL. [Concomitant]
     Active Substance: LISINOPRIL
  27. EPIPEN [Concomitant]
     Active Substance: EPINEPHRINE

REACTIONS (1)
  - Contusion [Unknown]
